FAERS Safety Report 9147997 (Version 1)
Quarter: 2013Q1

REPORT INFORMATION
  Report Type: Spontaneous
  Country: IT (occurrence: IT)
  Receive Date: 20130307
  Receipt Date: 20130307
  Transmission Date: 20140127
  Serious: Yes (Hospitalization)
  Sender: FDA-Public Use
  Company Number: IT-MYLANLABS-2013S1004342

PATIENT
  Age: 69 Year
  Sex: Male

DRUGS (3)
  1. PRAMIPEXOLE [Suspect]
     Indication: PARKINSON^S DISEASE
     Route: 048
     Dates: start: 20120103, end: 20130102
  2. SINEMET [Suspect]
     Indication: PARKINSON^S DISEASE
     Route: 048
     Dates: start: 20120103, end: 20130102
  3. CLOZAPINE [Suspect]
     Indication: PARKINSON^S DISEASE
     Route: 048
     Dates: start: 20120103, end: 20130102

REACTIONS (1)
  - Sopor [Recovering/Resolving]
